FAERS Safety Report 4541767-1 (Version None)
Quarter: 2004Q4

REPORT INFORMATION
  Report Type: 
  Country: None (occurrence: None)
  Receive Date: 20041230
  Receipt Date: 20040628
  Transmission Date: 20050328
  Serious: Yes (Hospitalization)
  Sender: FDA-Public Use
  Company Number: 200412219JP

PATIENT
  Age: 62 Year
  Sex: Female
  Weight: 58 kg

DRUGS (20)
  1. ARAVA [Suspect]
     Indication: RHEUMATOID ARTHRITIS
     Route: 048
     Dates: start: 20040402, end: 20040625
  2. PREDONINE [Suspect]
     Indication: RHEUMATOID ARTHRITIS
     Route: 048
     Dates: start: 20040629, end: 20040628
  3. LORCAM [Suspect]
     Indication: PAIN
     Route: 048
     Dates: start: 20040630
  4. LORCAM [Suspect]
     Indication: RHEUMATOID ARTHRITIS
     Route: 048
     Dates: start: 20040630
  5. GLAKAY [Concomitant]
     Indication: OSTEOPOROSIS
     Route: 048
  6. CLINORIL [Concomitant]
     Indication: PAIN
     Route: 048
     Dates: end: 20040628
  7. CLINORIL [Concomitant]
     Indication: RHEUMATOID ARTHRITIS
     Route: 048
     Dates: end: 20040628
  8. CYANOCOBALAMIN [Concomitant]
     Indication: NEUROPATHY PERIPHERAL
     Route: 048
  9. NEUER [Concomitant]
     Indication: GASTRIC DISORDER
     Dates: end: 20040628
  10. NEUER [Concomitant]
     Indication: PROPHYLAXIS
     Dates: end: 20040628
  11. ATARAX [Concomitant]
     Indication: PRURITUS
     Route: 048
     Dates: end: 20040628
  12. ORCL [Concomitant]
     Indication: RHEUMATOID ARTHRITIS
     Route: 048
     Dates: start: 20010729, end: 20040401
  13. RHEUMATREX [Concomitant]
     Indication: RHEUMATOID ARTHRITIS
     Route: 048
     Dates: start: 20000404, end: 20040401
  14. SELBEX [Concomitant]
     Indication: GASTRIC DISORDER
     Route: 048
     Dates: start: 20040630
  15. SELBEX [Concomitant]
     Indication: PROPHYLAXIS
     Route: 048
     Dates: start: 20040630
  16. BREDININ [Concomitant]
     Indication: RHEUMATOID ARTHRITIS
     Route: 048
     Dates: start: 20040630
  17. QUESTRAN [Concomitant]
     Route: 048
  18. PARIET [Concomitant]
     Indication: GASTRIC ULCER
     Route: 048
     Dates: start: 20040707
  19. STRONG NEO-MINOPHAGEN C [Concomitant]
     Indication: HEPATIC FUNCTION ABNORMAL
     Route: 042
     Dates: start: 20040628, end: 20040629
  20. METHOTREXATE [Concomitant]
     Dosage: DOSE: 6MG/WEEK
     Dates: start: 20000404, end: 20040401

REACTIONS (13)
  - ALANINE AMINOTRANSFERASE INCREASED [None]
  - ASPARTATE AMINOTRANSFERASE INCREASED [None]
  - BLOOD ALKALINE PHOSPHATASE INCREASED [None]
  - BLOOD BILIRUBIN INCREASED [None]
  - BLOOD CHOLESTEROL INCREASED [None]
  - BLOOD LACTATE DEHYDROGENASE INCREASED [None]
  - GAMMA-GLUTAMYLTRANSFERASE INCREASED [None]
  - GASTRIC ULCER [None]
  - HEPATIC FUNCTION ABNORMAL [None]
  - HYPOKALAEMIA [None]
  - NAUSEA [None]
  - PROTEIN TOTAL DECREASED [None]
  - STOMACH DISCOMFORT [None]
